FAERS Safety Report 5939350-6 (Version None)
Quarter: 2008Q4

REPORT INFORMATION
  Report Type: 
  Country: None (occurrence: None)
  Receive Date: 20081103
  Receipt Date: 20081031
  Transmission Date: 20090506
  Serious: Yes (Death, Other)
  Sender: FDA-Public Use
  Company Number: CA-B.I. PHARMACEUTICALS,INC./RIDGEFIELD-2008-CN-00569CN

PATIENT
  Sex: Female

DRUGS (2)
  1. CATAPRES [Suspect]
     Indication: ANALGESIA
     Route: 037
  2. METADOL [Concomitant]
     Dosage: 40MG
     Route: 048
     Dates: start: 20080701, end: 20081023

REACTIONS (2)
  - INFECTION [None]
  - LUNG CANCER METASTATIC [None]
